FAERS Safety Report 8957117 (Version 1)
Quarter: 2012Q4

REPORT INFORMATION
  Report Type: Spontaneous
  Country: US (occurrence: None)
  Receive Date: 20121130
  Receipt Date: 20121130
  Transmission Date: 20130627
  Serious: Yes (Hospitalization, Other)
  Sender: FDA-Public Use
  Company Number: AUR-APL-2012-05124

PATIENT
  Age: 61 Year
  Sex: Male
  Weight: 77.1 kg

DRUGS (5)
  1. VENLAFAXINE [Suspect]
     Indication: DRUG USE FOR UNKNOWN INDICATION
     Dosage: (50 mg, 3 in 1 D)
  2. VIAGRA [Suspect]
     Route: 048
     Dates: start: 2009
  3. DETROL LA [Suspect]
     Route: 048
     Dates: start: 2010
  4. CELEBREX [Suspect]
     Dosage: (200 mg, 2 in 1 D)
     Route: 048
  5. CELEBREX [Suspect]
     Dosage: (200 mg, 2 in 1 D)
     Route: 048

REACTIONS (4)
  - Parkinson^s disease [None]
  - Psoriatic arthropathy [None]
  - Gout [None]
  - Activities of daily living impaired [None]
